FAERS Safety Report 5381623-2 (Version None)
Quarter: 2007Q2

REPORT INFORMATION
  Report Type: 
  Country: None (occurrence: None)
  Receive Date: 20070629
  Receipt Date: 20070427
  Transmission Date: 20071010
  Serious: Yes (Other)
  Sender: FDA-Public Use
  Company Number: A03200702779

PATIENT
  Age: 50 Year
  Sex: Female

DRUGS (2)
  1. AMBIEN CR [Suspect]
     Indication: INSOMNIA
     Dosage: ORAL
     Route: 048
     Dates: start: 20070401
  2. THYROID TAB [Concomitant]

REACTIONS (3)
  - HALLUCINATION, VISUAL [None]
  - INCREASED APPETITE [None]
  - SOMNOLENCE [None]
